FAERS Safety Report 7745934-5 (Version None)
Quarter: 2011Q3

REPORT INFORMATION
  Report Type: 
  Country: None (occurrence: None)
  Receive Date: 20110913
  Receipt Date: 20110907
  Transmission Date: 20111222
  Serious: No
  Sender: FDA-Public Use
  Company Number: US-PFIZER INC-2011210871

PATIENT
  Sex: Male

DRUGS (3)
  1. DILANTIN [Suspect]
     Dosage: UNK
  2. ALLEGRA [Interacting]
     Indication: HYPERSENSITIVITY
     Dosage: 180 MG, DAILY
     Route: 048
     Dates: start: 20110101
  3. KEPPRA [Concomitant]
     Dosage: UNK

REACTIONS (3)
  - MALAISE [None]
  - DRUG LEVEL INCREASED [None]
  - DRUG INTERACTION [None]
